FAERS Safety Report 19015160 (Version 2)
Quarter: 2021Q1

REPORT INFORMATION
  Report Type: Spontaneous
  Country: US (occurrence: US)
  Receive Date: 20210317
  Receipt Date: 20210323
  Transmission Date: 20210420
  Serious: No
  Sender: FDA-Public Use
  Company Number: US-MTPC-MTDA2021-0006665

PATIENT
  Age: 66 Year
  Sex: Male

DRUGS (18)
  1. CARDIZEM [Concomitant]
     Active Substance: DILTIAZEM HYDROCHLORIDE
     Indication: PRODUCT USED FOR UNKNOWN INDICATION
     Dosage: 120 MILLIGRAM, QD
     Route: 048
     Dates: start: 20210211
  2. LASIX [Concomitant]
     Active Substance: FUROSEMIDE
     Indication: PRODUCT USED FOR UNKNOWN INDICATION
     Dosage: 40 MILLIGRAM, QD
     Route: 048
     Dates: start: 20210302
  3. PRAMIPEXOLE. [Concomitant]
     Active Substance: PRAMIPEXOLE
     Indication: PRODUCT USED FOR UNKNOWN INDICATION
     Dosage: 0.75 MILLIGRAM, QD
     Route: 048
     Dates: start: 20210208
  4. PREDNISONE. [Concomitant]
     Active Substance: PREDNISONE
     Indication: PRODUCT USED FOR UNKNOWN INDICATION
     Dosage: 2 DOSAGE FORM, QD FOR 5 DAYS
     Route: 048
     Dates: start: 20210208
  5. RADICAVA [Suspect]
     Active Substance: EDARAVONE
     Indication: AMYOTROPHIC LATERAL SCLEROSIS
     Dosage: UNK, 14 DAYS THEN 14 DAY BREAK
     Route: 042
     Dates: start: 20200518
  6. RADICAVA [Suspect]
     Active Substance: EDARAVONE
     Dosage: UNK, 10 DAYS OUT OF 14 THEN 14 DAY BREAK
     Route: 042
     Dates: end: 20210301
  7. PAROXETINE. [Concomitant]
     Active Substance: PAROXETINE
     Indication: PRODUCT USED FOR UNKNOWN INDICATION
     Dosage: 10 MILLIGRAM, QD
     Route: 048
     Dates: start: 20210208
  8. ATORVASTATIN [Concomitant]
     Active Substance: ATORVASTATIN
     Indication: PRODUCT USED FOR UNKNOWN INDICATION
     Dosage: 40 MILLIGRAM, QD
     Route: 065
     Dates: start: 20210125
  9. BACLOFEN. [Concomitant]
     Active Substance: BACLOFEN
     Indication: PRODUCT USED FOR UNKNOWN INDICATION
     Dosage: 0.5 DOSAGE FORM, TID
     Route: 048
     Dates: start: 20210118
  10. RADICAVA [Suspect]
     Active Substance: EDARAVONE
     Dosage: UNK, 10 DAYS OUT OF 14 THEN 14 DAY BREAK
     Route: 042
     Dates: start: 20210317
  11. ELIQUIS [Concomitant]
     Active Substance: APIXABAN
     Indication: PRODUCT USED FOR UNKNOWN INDICATION
     Dosage: 5 MILLIGRAM, BID
     Route: 048
     Dates: start: 20210212
  12. LOSARTAN. [Concomitant]
     Active Substance: LOSARTAN
     Indication: PRODUCT USED FOR UNKNOWN INDICATION
     Dosage: 50 MILLIGRAM, QD
     Route: 048
     Dates: start: 20210212
  13. RADICAVA [Suspect]
     Active Substance: EDARAVONE
     Dosage: UNK, 10 DAYS OUT OF 14 THEN 14 DAY BREAK
     Route: 042
     Dates: start: 20210315
  14. RILUZOLE. [Concomitant]
     Active Substance: RILUZOLE
     Indication: PRODUCT USED FOR UNKNOWN INDICATION
     Dosage: 50 MILLIGRAM, BID 1 HOUR BEFORE MEAL OR 2 HOURS AFTER A MEAL
     Route: 048
     Dates: start: 20210208
  15. RADICAVA [Suspect]
     Active Substance: EDARAVONE
     Dosage: UNK, 10 DAYS OUT OF 14 THEN 14 DAY BREAK
     Route: 042
     Dates: start: 20210318
  16. RADICAVA [Suspect]
     Active Substance: EDARAVONE
     Dosage: 60 MILILGRAM, QD OVER 2 WEEKS, FOLLOWED BY 14?DAY DRUG?FREE PERIOD
     Route: 042
     Dates: start: 20200720
  17. GLYCOPYRROLATE. [Concomitant]
     Active Substance: GLYCOPYRROLATE
     Indication: PRODUCT USED FOR UNKNOWN INDICATION
     Dosage: 1 MILLIGRAM
     Route: 065
     Dates: start: 20200518
  18. OMEPRAZOLE. [Concomitant]
     Active Substance: OMEPRAZOLE
     Indication: PRODUCT USED FOR UNKNOWN INDICATION
     Dosage: 1 MILLIGRAM QD AS NEEDED
     Route: 065
     Dates: start: 20160728

REACTIONS (2)
  - Inappropriate schedule of product administration [Recovering/Resolving]
  - Unevaluable event [Unknown]

NARRATIVE: CASE EVENT DATE: 20210301
